FAERS Safety Report 8035540-X (Version None)
Quarter: 2012Q1

REPORT INFORMATION
  Report Type: 
  Country: None (occurrence: None)
  Receive Date: 20120110
  Receipt Date: 20120110
  Transmission Date: 20120608
  Serious: No
  Sender: FDA-Public Use
  Company Number: None

PATIENT
  Age: 54 Year
  Sex: Female
  Weight: 68.9467 kg

DRUGS (2)
  1. LANTUS [Suspect]
     Indication: TYPE 2 DIABETES MELLITUS
     Dosage: 25 TWICE QHS S.C
     Route: 058
     Dates: start: 20110729, end: 20110815
  2. ONGLYZA [Suspect]
     Dosage: Q AM Q AM PO
     Route: 048
     Dates: start: 20110729, end: 20110815

REACTIONS (1)
  - DYSPEPSIA [None]
